FAERS Safety Report 7779121-1 (Version None)
Quarter: 2011Q3

REPORT INFORMATION
  Report Type: 
  Country: None (occurrence: None)
  Receive Date: 20110926
  Receipt Date: 20110919
  Transmission Date: 20111222
  Serious: Yes (Death, Hospitalization)
  Sender: FDA-Public Use
  Company Number: PHHO2011PH07229

PATIENT
  Sex: Male
  Weight: 70 kg

DRUGS (21)
  1. ENALAPRIL MALEATE [Suspect]
     Indication: CARDIAC FAILURE CHRONIC
     Dosage: CODE NOT BROKEN
     Route: 048
     Dates: start: 20100806, end: 20100908
  2. SPIRONOLACTONE [Suspect]
     Indication: OEDEMA
     Dosage: 25 MG, QD
     Dates: start: 20110502
  3. SIMVASTATIN [Concomitant]
     Indication: CORONARY ARTERY DISEASE
  4. CLOPIDOGREL [Concomitant]
     Indication: ATHEROSCLEROSIS PROPHYLAXIS
     Dosage: 75 MG, QD
     Dates: start: 20110424
  5. DIGOXIN [Suspect]
     Indication: CARDIAC FAILURE CONGESTIVE
     Dosage: 0.25 MG, QD
     Dates: start: 20070101
  6. ENALAPRIL MALEATE [Suspect]
     Dosage: DOUBLE BLIND
     Route: 048
     Dates: start: 20110502
  7. SIMVASTATIN [Concomitant]
     Indication: HYPERLIPIDAEMIA
     Dosage: 40 MG, QD
     Dates: start: 20070101
  8. METFORMIN HCL [Concomitant]
     Indication: TYPE 2 DIABETES MELLITUS
     Dosage: 500 MG, TID
     Dates: start: 20110816
  9. BLINDED LCZ696 [Suspect]
     Indication: CARDIAC FAILURE CHRONIC
     Dosage: DOUBLE BLIND
     Route: 048
     Dates: start: 20100910, end: 20110420
  10. LCZ696 [Suspect]
     Indication: CARDIAC FAILURE CHRONIC
     Dosage: CODE NOT BROKEN
     Route: 048
     Dates: start: 20100722, end: 20100804
  11. ENALAPRIL MALEATE [Suspect]
     Indication: CARDIAC FAILURE CHRONIC
     Dosage: DOUBLE BLIND
     Route: 048
     Dates: start: 20100910, end: 20110420
  12. BLINDED NO TREATMENT RECEIVED [Suspect]
     Dosage: DOUBLE BLIND
     Route: 048
     Dates: start: 20110502
  13. LASIX [Suspect]
  14. ISORBIDE [Concomitant]
     Indication: ANGINA PECTORIS
     Dosage: 40 MG, QD
     Dates: start: 20110502
  15. CARVEDILOL [Concomitant]
     Indication: CARDIAC FAILURE CONGESTIVE
     Dosage: 0.25 MG, QD
     Dates: start: 20110502
  16. FUROSEMIDE [Concomitant]
  17. ASPIRIN [Concomitant]
     Indication: ATHEROSCLEROSIS PROPHYLAXIS
     Dosage: 80 MG, QD
     Dates: start: 20070101
  18. TRIMETAZIDINE [Concomitant]
     Indication: ANGINA PECTORIS
     Dosage: 35 MG, BID
     Dates: start: 20110405
  19. BLINDED NO TREATMENT RECEIVED [Suspect]
     Indication: CARDIAC FAILURE CHRONIC
     Dosage: DOUBLE BLIND
     Route: 048
     Dates: start: 20100910, end: 20110420
  20. BLINDED LCZ696 [Suspect]
     Dosage: DOUBLE BLIND
     Route: 048
     Dates: start: 20110502
  21. INSULIN GLARGINE [Concomitant]
     Indication: TYPE 2 DIABETES MELLITUS
     Dosage: 5 IU, QD
     Route: 058
     Dates: start: 20110805

REACTIONS (3)
  - ARRHYTHMIA [None]
  - GASTROENTERITIS [None]
  - CONCOMITANT DISEASE PROGRESSION [None]
